FAERS Safety Report 7337641-8 (Version None)
Quarter: 2011Q1

REPORT INFORMATION
  Report Type: 
  Country: None (occurrence: None)
  Receive Date: 20110224
  Receipt Date: 20110209
  Transmission Date: 20110831
  Serious: Yes (Other)
  Sender: FDA-Public Use
  Company Number: 2011P1004382

PATIENT
  Age: 2 Year
  Sex: Male
  Weight: 14 kg

DRUGS (3)
  1. PREV MEDS [Concomitant]
  2. CON MEDS [Concomitant]
  3. LAMOTRIGINE [Suspect]
     Indication: ACCIDENTAL OVERDOSE
     Dosage: 600 MG, X1, PO
     Route: 048

REACTIONS (11)
  - IRRITABILITY [None]
  - CONVULSION [None]
  - NYSTAGMUS [None]
  - SOMNOLENCE [None]
  - MUSCLE TWITCHING [None]
  - BLOOD LACTIC ACID INCREASED [None]
  - BALANCE DISORDER [None]
  - HYPERREFLEXIA [None]
  - ACCIDENTAL DRUG INTAKE BY CHILD [None]
  - HUNGER [None]
  - VOMITING [None]
